FAERS Safety Report 16541697 (Version 1)
Quarter: 2019Q3

REPORT INFORMATION
  Report Type: Report from Study
  Country: US (occurrence: US)
  Receive Date: 20190708
  Receipt Date: 20190708
  Transmission Date: 20191004
  Serious: Yes (Hospitalization)
  Sender: FDA-Public Use
  Company Number: US-TEVA-2019-US-1073009

PATIENT
  Age: 16 Year
  Sex: Male
  Weight: 92.3 kg

DRUGS (8)
  1. DEXAMETHASONE. [Suspect]
     Active Substance: DEXAMETHASONE
     Indication: ACUTE LYMPHOCYTIC LEUKAEMIA
     Route: 048
     Dates: start: 20170907
  2. DOXORUBICIN [Suspect]
     Active Substance: DOXORUBICIN
     Indication: ACUTE LYMPHOCYTIC LEUKAEMIA
     Dosage: (215 MG/M2), 1-15 MIN;
     Route: 042
     Dates: start: 20170907
  3. VINCRISTINE [Suspect]
     Active Substance: VINCRISTINE
     Indication: ACUTE LYMPHOCYTIC LEUKAEMIA
     Dosage: ONCE, GIVEN DAY 1,8,15,43,50;
     Route: 042
     Dates: start: 20170421
  4. THIOGUANINE [Suspect]
     Active Substance: THIOGUANINE
     Indication: ACUTE LYMPHOCYTIC LEUKAEMIA
     Dosage: 60 MILLIGRAM 60 MILLIGRAM (60 MG/M2 ONCE DAILY, 50% DOSE REDUCTION DUE TO MYELOSUPPRESION) GIVEN DAY
     Route: 048
     Dates: start: 20171019
  5. METHOTREXATE. [Suspect]
     Active Substance: METHOTREXATE
     Indication: ACUTE LYMPHOCYTIC LEUKAEMIA
     Route: 037
     Dates: start: 20170407
  6. CYTARABINE HYDROCHLORIDE 100MG/5ML SDV + 500MG/10ML SDV [Suspect]
     Active Substance: CYTARABINE HYDROCHLORIDE
     Indication: ACUTE LYMPHOCYTIC LEUKAEMIA
     Dosage: 154 MILLIGRAM(75MG/M2) 1.30 MIN, GIVEN DAY 29-32, 36-39
     Route: 042
     Dates: start: 20170407
  7. PEGASPARGASE [Suspect]
     Active Substance: PEGASPARGASE
     Indication: ACUTE LYMPHOCYTIC LEUKAEMIA
     Dosage: 5100 IU, 2500 IU 1-2 HOURS
     Dates: start: 20170421
  8. CYCLOPHOSPHAMIDE. [Suspect]
     Active Substance: CYCLOPHOSPHAMIDE
     Indication: ACUTE LYMPHOCYTIC LEUKAEMIA
     Dosage: 2050 MILLIGRAM (1000 MG/M2), 30-60 MIN ONCE, GIVEN ON DAY 29
     Route: 042
     Dates: start: 20170407

REACTIONS (1)
  - Febrile neutropenia [Recovered/Resolved]
